FAERS Safety Report 16641888 (Version 1)
Quarter: 2019Q3

REPORT INFORMATION
  Report Type: Spontaneous
  Country: US (occurrence: US)
  Receive Date: 20190729
  Receipt Date: 20190729
  Transmission Date: 20191004
  Serious: No
  Sender: FDA-Public Use
  Company Number: US-SUN PHARMACEUTICAL INDUSTRIES LTD-2018US-186125

PATIENT
  Sex: Male

DRUGS (1)
  1. TESTOSTERONE. [Suspect]
     Active Substance: TESTOSTERONE
     Indication: BLOOD TESTOSTERONE DECREASED
     Dosage: 1.5 ML, 1/WEEK
     Route: 065
     Dates: start: 2018

REACTIONS (6)
  - Drug ineffective [Unknown]
  - Application site pain [Unknown]
  - Asthenia [Unknown]
  - Somnolence [Unknown]
  - Fatigue [Unknown]
  - Mental impairment [Unknown]

NARRATIVE: CASE EVENT DATE: 2018
